FAERS Safety Report 9539401 (Version 2)
Quarter: 2013Q3

REPORT INFORMATION
  Report Type: Report from Study
  Country: BE (occurrence: BE)
  Receive Date: 20130920
  Receipt Date: 20130920
  Transmission Date: 20140515
  Serious: Yes (Death, Hospitalization)
  Sender: FDA-Public Use
  Company Number: BE-CELGENEUS-013-50794-12090594

PATIENT
  Age: 63 Year
  Sex: Male
  Weight: 110 kg

DRUGS (3)
  1. VIDAZA [Suspect]
     Indication: MYELODYSPLASTIC SYNDROME
     Dosage: 93 MILLIGRAM
     Route: 065
     Dates: start: 20120824, end: 20120830
  2. VIDAZA [Suspect]
     Dosage: 93 MILLIGRAM
     Route: 065
     Dates: start: 20120723, end: 20120729
  3. VIDAZA [Suspect]
     Dosage: 94 MILLIGRAM
     Route: 065
     Dates: start: 20120620, end: 20120626

REACTIONS (2)
  - Death [Fatal]
  - General physical health deterioration [Not Recovered/Not Resolved]
